FAERS Safety Report 9909724 (Version 2)
Quarter: 2014Q1

REPORT INFORMATION
  Report Type: Spontaneous
  Country: US (occurrence: US)
  Receive Date: 20140219
  Receipt Date: 20140219
  Transmission Date: 20141002
  Serious: No
  Sender: FDA-Public Use
  Company Number: US-GILEAD-2012-0049365

PATIENT
  Sex: Female

DRUGS (9)
  1. LETAIRIS [Suspect]
     Indication: PRODUCT USED FOR UNKNOWN INDICATION
     Dosage: 5 MG, UNK
     Route: 048
     Dates: start: 20100329
  2. REVATIO [Concomitant]
  3. HERBAL PRODUCT [Concomitant]
  4. PRIMIDONE [Concomitant]
  5. OMEPRAZOLE [Concomitant]
  6. ASPIRIN [Concomitant]
  7. OMEGA 3-6-9 [Concomitant]
  8. SYNTHROID [Concomitant]
  9. VITAMIN D                          /00107901/ [Concomitant]

REACTIONS (2)
  - Dysphagia [Unknown]
  - Gastrooesophageal reflux disease [Unknown]
